FAERS Safety Report 16858504 (Version 1)
Quarter: 2019Q3

REPORT INFORMATION
  Report Type: Report from Study
  Country: FR (occurrence: FR)
  Receive Date: 20190926
  Receipt Date: 20190926
  Transmission Date: 20191005
  Serious: Yes (Hospitalization)
  Sender: FDA-Public Use
  Company Number: FR-REGENERON PHARMACEUTICALS, INC.-2019-54707

PATIENT

DRUGS (17)
  1. VITABACT [Concomitant]
     Active Substance: PICLOXYDINE DIHYDROCHLORIDE
     Indication: EYE DISORDER
     Dosage: 1 GTT, UNK
     Route: 047
     Dates: start: 200803
  2. MELATONIN [Concomitant]
     Active Substance: MELATONIN
     Indication: INSOMNIA
     Dosage: UNK, QD
     Route: 048
     Dates: start: 201901
  3. EUPHYTOSE                          /05965601/ [Concomitant]
     Active Substance: HERBALS
     Indication: NERVOUSNESS
  4. XAILIN [Concomitant]
     Indication: DRY EYE
     Dosage: UNK
     Route: 047
     Dates: start: 201812
  5. FLUOROMETHOLONE. [Concomitant]
     Active Substance: FLUOROMETHOLONE
     Indication: EYE DISORDER
     Dosage: 1 GTT, BID
     Route: 047
  6. PARACETAMOL [Concomitant]
     Active Substance: ACETAMINOPHEN
     Indication: TENDONITIS
     Route: 048
  7. COLCHICINE. [Concomitant]
     Active Substance: COLCHICINE
     Dosage: 1 MG, UNK
     Route: 048
     Dates: start: 20190708
  8. TAMSULOSINE                        /01280301/ [Concomitant]
     Active Substance: TAMSULOSIN
     Indication: BENIGN PROSTATIC HYPERPLASIA
     Dosage: 0.4 MG, UNK
     Route: 048
     Dates: start: 20190708
  9. HYLO COMOD [Concomitant]
     Active Substance: HYALURONATE SODIUM
     Indication: CONJUNCTIVAL HYPERAEMIA
     Dosage: 1 UNK, UNK
     Route: 047
     Dates: start: 20181109
  10. DIOSMECTITE [Concomitant]
     Active Substance: MONTMORILLONITE
     Indication: DRUG INEFFECTIVE
     Dosage: UNK
     Route: 048
     Dates: start: 20190708
  11. BETAINE CITRATE [Concomitant]
     Active Substance: BETAINE CITRATE
     Indication: ABDOMINAL DISTENSION
     Route: 048
  12. VITAMIN A                          /00056003/ [Concomitant]
     Indication: CONJUNCTIVAL HYPERAEMIA
     Dosage: 1 GTT, UNK
     Route: 047
     Dates: start: 20181019
  13. EUPHYTOSE                          /05965601/ [Concomitant]
     Active Substance: HERBALS
     Indication: STRESS
     Dosage: UNK
     Route: 048
     Dates: start: 201901
  14. LERCANIDIPINE [Concomitant]
     Active Substance: LERCANIDIPINE
     Indication: HYPERTENSION
     Dosage: 5 MG, UNK
     Route: 048
     Dates: start: 20190607
  15. CEMIPLIMAB [Suspect]
     Active Substance: CEMIPLIMAB
     Indication: BASAL CELL CARCINOMA
     Dosage: 350 MG, Q3W
     Route: 042
     Dates: start: 20180302
  16. OMEXEL [Concomitant]
     Active Substance: TAMSULOSIN HYDROCHLORIDE
     Indication: BENIGN PROSTATIC HYPERPLASIA
     Route: 048
  17. APIXABAN [Concomitant]
     Active Substance: APIXABAN
     Indication: PHLEBITIS
     Dosage: 10 MG, BID
     Route: 048
     Dates: start: 20190708

REACTIONS (1)
  - Adrenal insufficiency [Recovered/Resolved]

NARRATIVE: CASE EVENT DATE: 20190809
